FAERS Safety Report 6339624-3 (Version None)
Quarter: 2009Q3

REPORT INFORMATION
  Report Type: 
  Country: None (occurrence: None)
  Receive Date: 20090903
  Receipt Date: 20090828
  Transmission Date: 20100115
  Serious: No
  Sender: FDA-Public Use
  Company Number: US-MERCK-0805USA04447M

PATIENT
  Age: 34 Year
  Sex: Female

DRUGS (3)
  1. SINGULAIR [Suspect]
     Indication: ASTHMA
     Route: 048
     Dates: start: 20040101
  2. ZYRTEC [Concomitant]
     Route: 065
  3. PROVENTIL-HFA [Concomitant]
     Route: 065

REACTIONS (3)
  - ASTHMA [None]
  - DRUG EXPOSURE DURING PREGNANCY [None]
  - NO ADVERSE EVENT [None]
